FAERS Safety Report 5589397-7 (Version None)
Quarter: 2008Q1

REPORT INFORMATION
  Report Type: 
  Country: None (occurrence: None)
  Receive Date: 20080110
  Receipt Date: 20080110
  Transmission Date: 20080703
  Serious: Yes (Hospitalization)
  Sender: FDA-Public Use
  Company Number: None

PATIENT
  Sex: Male
  Weight: 63.9572 kg

DRUGS (4)
  1. ERBITUX [Suspect]
     Indication: NEOPLASM MALIGNANT
     Dosage: WKLY/IV, 250 MG/M2
     Route: 042
     Dates: end: 20071205
  2. RADIATION THERAPY [Suspect]
     Indication: NEOPLASM MALIGNANT
     Dosage: DAILY/IV
     Route: 042
     Dates: end: 20071212
  3. ROXICET [Concomitant]
  4. FOLIC ACID [Concomitant]

REACTIONS (3)
  - PROCEDURAL COMPLICATION [None]
  - PYREXIA [None]
  - VOMITING [None]
